FAERS Safety Report 7430477-9 (Version None)
Quarter: 2011Q2

REPORT INFORMATION
  Report Type: 
  Country: None (occurrence: None)
  Receive Date: 20110421
  Receipt Date: 20100908
  Transmission Date: 20111010
  Serious: No
  Sender: FDA-Public Use
  Company Number: US-ASTRAZENECA-2010SE42277

PATIENT
  Age: 60 Year
  Sex: Male
  Weight: 90.7 kg

DRUGS (1)
  1. METOPROLOL SUCCINATE [Suspect]
     Route: 048

REACTIONS (1)
  - EXERCISE TOLERANCE DECREASED [None]
